FAERS Safety Report 13869400 (Version 1)
Quarter: 2017Q3

REPORT INFORMATION
  Report Type: Spontaneous
  Country: US (occurrence: US)
  Receive Date: 20170815
  Receipt Date: 20170815
  Transmission Date: 20171127
  Serious: Yes (Other)
  Sender: FDA-Public Use
  Company Number: US-PFIZER INC-2017345067

PATIENT
  Sex: Female

DRUGS (1)
  1. SULFASALAZINE. [Suspect]
     Active Substance: SULFASALAZINE
     Dosage: 500 MG, 3X/DAY, (EVERY 8 HOURS)

REACTIONS (15)
  - Back pain [Unknown]
  - Asthenia [Unknown]
  - Arthralgia [Unknown]
  - Joint swelling [Unknown]
  - Synovitis [Unknown]
  - Blood pressure increased [Unknown]
  - Arthritis [Unknown]
  - Joint range of motion decreased [Unknown]
  - Decreased appetite [Unknown]
  - Condition aggravated [Unknown]
  - Pain [Unknown]
  - Arcus lipoides [Unknown]
  - Fatigue [Unknown]
  - Sleep disorder [Unknown]
  - Cataract [Unknown]
